FAERS Safety Report 23035250 (Version 1)
Quarter: 2023Q4

REPORT INFORMATION
  Report Type: Spontaneous
  Country: CN (occurrence: CN)
  Receive Date: 20231005
  Receipt Date: 20231005
  Transmission Date: 20240109
  Serious: Yes (Other)
  Sender: FDA-Public Use
  Company Number: CN-BEH-2023163735

PATIENT
  Age: 49 Year
  Sex: Female
  Weight: 55 kg

DRUGS (1)
  1. ALBURX [Suspect]
     Active Substance: ALBUMIN HUMAN
     Indication: Hypoproteinaemia
     Dosage: 10 GRAM, OD
     Route: 041
     Dates: start: 20230915, end: 20230915

REACTIONS (5)
  - Rash maculo-papular [Recovering/Resolving]
  - Rash erythematous [Recovering/Resolving]
  - Platelet count decreased [Recovering/Resolving]
  - Coagulation time prolonged [Recovering/Resolving]
  - Purpura [Unknown]

NARRATIVE: CASE EVENT DATE: 20230901
